FAERS Safety Report 7922152-9 (Version None)
Quarter: 2011Q4

REPORT INFORMATION
  Report Type: 
  Country: None (occurrence: None)
  Receive Date: 20111117
  Receipt Date: 20110119
  Transmission Date: 20120403
  Serious: No
  Sender: FDA-Public Use
  Company Number: US-AMGEN-KDL352163

PATIENT
  Age: 63 Year
  Sex: Male

DRUGS (6)
  1. ENBREL [Suspect]
     Indication: RHEUMATOID ARTHRITIS
     Dosage: 50 MG, QWK
     Route: 058
     Dates: start: 20060521
  2. ALLOPURINOL [Concomitant]
     Dosage: 300 MG, UNK
     Dates: start: 20020301
  3. METHOTREXATE [Concomitant]
  4. DICLOFENAC SODIUM/MISOPROSTOL [Concomitant]
     Dosage: 75 MG, UNK
     Dates: start: 20050105
  5. PAROXETINE HCL [Concomitant]
  6. ENBREL [Suspect]
     Dates: start: 20071001

REACTIONS (9)
  - DECREASED ACTIVITY [None]
  - HYPERHIDROSIS [None]
  - RHEUMATOID ARTHRITIS [None]
  - RHEUMATOID NODULE [None]
  - PAIN [None]
  - ARTHRALGIA [None]
  - JOINT STIFFNESS [None]
  - HOT FLUSH [None]
  - SLEEP APNOEA SYNDROME [None]
